FAERS Safety Report 9282893 (Version 1)
Quarter: 2013Q2

REPORT INFORMATION
  Report Type: Spontaneous
  Country: FR (occurrence: FR)
  Receive Date: 20130510
  Receipt Date: 20130510
  Transmission Date: 20140414
  Serious: Yes (Hospitalization)
  Sender: FDA-Public Use
  Company Number: FR-JNJFOC-20130417595

PATIENT
  Age: 82 Year
  Sex: Female

DRUGS (6)
  1. EPREX [Suspect]
     Indication: ANAEMIA OF MALIGNANT DISEASE
     Dosage: LONG TERM THERAPY
     Route: 058
     Dates: start: 2012
  2. TAVANIC [Suspect]
     Indication: ANTIBIOTIC PROPHYLAXIS
     Dosage: LONG TERM THERAPY
     Route: 048
     Dates: start: 20120801, end: 20121201
  3. REVLIMID [Suspect]
     Indication: PRODUCT USED FOR UNKNOWN INDICATION
     Dosage: LONG TERM THERAPY
     Route: 048
     Dates: start: 20120726
  4. PRAVASTATIN SODIUM [Concomitant]
     Indication: PRODUCT USED FOR UNKNOWN INDICATION
     Dosage: LONG TERM THERAPY, 20 , 1 PER DAY
     Route: 048
  5. KARDEGIC [Concomitant]
     Indication: PRODUCT USED FOR UNKNOWN INDICATION
     Dosage: LONG TERM THERAPY
     Route: 048
  6. STRUCTUM [Concomitant]
     Indication: PRODUCT USED FOR UNKNOWN INDICATION
     Dosage: LONG TERM THERAPY
     Route: 048
     Dates: start: 2012

REACTIONS (2)
  - Pulmonary embolism [Recovered/Resolved]
  - Drug resistance [Unknown]
